FAERS Safety Report 5319369-9 (Version None)
Quarter: 2007Q2

REPORT INFORMATION
  Report Type: 
  Country: None (occurrence: None)
  Receive Date: 20070508
  Receipt Date: 20070502
  Transmission Date: 20071010
  Serious: Yes (Hospitalization)
  Sender: FDA-Public Use
  Company Number: US-ELI_LILLY_AND_COMPANY-US200705000535

PATIENT
  Age: 52 Year
  Sex: Female
  Weight: 90.702 kg

DRUGS (5)
  1. BYETTA [Suspect]
     Indication: DIABETES MELLITUS NON-INSULIN-DEPENDENT
     Dosage: 5 UG, 2/D
     Route: 058
     Dates: start: 20060801, end: 20060801
  2. BYETTA [Suspect]
     Dosage: 10 UG, 2/D
     Route: 058
     Dates: start: 20060101
  3. LANTUS [Concomitant]
     Dosage: UNK, EACH EVENING
     Route: 065
  4. GLUCOPHAGE [Concomitant]
     Dosage: 2000 MG, DAILY (1/D)
     Route: 048
  5. PRANDIN [Concomitant]
     Dosage: 1 MG, 3/D
     Route: 048

REACTIONS (5)
  - CARDIAC DISORDER [None]
  - CORONARY ARTERY OCCLUSION [None]
  - DECREASED APPETITE [None]
  - NEPHROLITHIASIS [None]
  - WEIGHT DECREASED [None]
